FAERS Safety Report 16471165 (Version 2)
Quarter: 2019Q3

REPORT INFORMATION
  Report Type: Report from Study
  Country: US (occurrence: US)
  Receive Date: 20190624
  Receipt Date: 20190716
  Transmission Date: 20191004
  Serious: Yes (Hospitalization)
  Sender: FDA-Public Use
  Company Number: US-EXELIXIS-CABO-19020492

PATIENT
  Age: 75 Year
  Sex: Male

DRUGS (2)
  1. CABOMETYX [Suspect]
     Active Substance: CABOZANTINIB S-MALATE
     Dosage: 40 MG, TWO DAYS ON AND ONE DAY OFF (IN AM WITHOUT FOOD)
     Dates: start: 20190703
  2. CABOMETYX [Suspect]
     Active Substance: CABOZANTINIB S-MALATE
     Indication: RENAL CELL CARCINOMA
     Dosage: 40 MG, QD (IN THE MORNING WITHOUT FOOD)
     Dates: start: 20190410, end: 20190615

REACTIONS (4)
  - Anorectal infection [Unknown]
  - Depressed mood [Recovered/Resolved]
  - Diarrhoea [Not Recovered/Not Resolved]
  - Blood pressure increased [Recovered/Resolved]

NARRATIVE: CASE EVENT DATE: 2019
